FAERS Safety Report 24390373 (Version 4)
Quarter: 2025Q1

REPORT INFORMATION
  Report Type: Spontaneous
  Country: JP (occurrence: JP)
  Receive Date: 20241003
  Receipt Date: 20250216
  Transmission Date: 20250409
  Serious: Yes (Death)
  Sender: ABBVIE
  Company Number: JP-ABBVIE-5947533

PATIENT
  Age: 77 Year
  Sex: Female

DRUGS (2)
  1. SKYRIZI [Suspect]
     Active Substance: RISANKIZUMAB-RZAA
     Indication: Colitis ulcerative
     Route: 041
  2. MIRIKIZUMAB [Suspect]
     Active Substance: MIRIKIZUMAB
     Indication: Colitis ulcerative
     Route: 065

REACTIONS (2)
  - Cardiac failure [Fatal]
  - Pneumonia [Fatal]
